FAERS Safety Report 5650088-5 (Version None)
Quarter: 2008Q1

REPORT INFORMATION
  Report Type: 
  Country: None (occurrence: None)
  Receive Date: 20080303
  Receipt Date: 20080221
  Transmission Date: 20080703
  Serious: Yes (Hospitalization, Other)
  Sender: FDA-Public Use
  Company Number: 2008BI004300

PATIENT
  Age: 49 Year
  Sex: Female
  Weight: 83.9154 kg

DRUGS (1)
  1. AVONEX [Suspect]
     Indication: MULTIPLE SCLEROSIS
     Dosage: 30 UG; QW; IM
     Route: 030
     Dates: start: 20000301

REACTIONS (2)
  - CEREBROVASCULAR ACCIDENT [None]
  - THROMBOSIS [None]
